FAERS Safety Report 8508436-4 (Version None)
Quarter: 2012Q3

REPORT INFORMATION
  Report Type: 
  Country: None (occurrence: None)
  Receive Date: 20120713
  Receipt Date: 20120704
  Transmission Date: 20120928
  Serious: Yes (Other)
  Sender: FDA-Public Use
  Company Number: CA-JNJFOC-20120702909

PATIENT
  Sex: Male
  Weight: 75 kg

DRUGS (4)
  1. REMICADE [Suspect]
     Indication: CROHN'S DISEASE
     Route: 042
     Dates: start: 20120523
  2. IMURAN [Concomitant]
     Route: 065
  3. REMICADE [Suspect]
     Dosage: SECOND INFUSION
     Route: 042
     Dates: start: 20120608
  4. REMICADE [Suspect]
     Dosage: THIRD INFUSION
     Route: 042
     Dates: start: 20120704

REACTIONS (6)
  - HEAD INJURY [None]
  - NAUSEA [None]
  - VOMITING [None]
  - SYNCOPE [None]
  - LOSS OF CONSCIOUSNESS [None]
  - LETHARGY [None]
